FAERS Safety Report 16898183 (Version 5)
Quarter: 2020Q3

REPORT INFORMATION
  Report Type: Report from Study
  Country: PT (occurrence: PT)
  Receive Date: 20191009
  Receipt Date: 20200716
  Transmission Date: 20201102
  Serious: Yes (Hospitalization, Other)
  Sender: FDA-Public Use
  Company Number: PT-AUROBINDO-AUR-APL-2019-064811

PATIENT
  Age: 61 Year
  Sex: Female

DRUGS (7)
  1. IRBESARTAN+HYDROCHLOROTHIAZIDE 300MG/12.5MG [Suspect]
     Active Substance: HYDROCHLOROTHIAZIDE\IRBESARTAN
     Indication: HYPERTENSION
     Dosage: 1 DOSAGE FORM, ONCE A DAY
     Route: 065
  2. IRBESARTAN+HYDROCHLOROTHIAZIDE 300MG/12.5MG [Suspect]
     Active Substance: HYDROCHLOROTHIAZIDE\IRBESARTAN
     Dosage: UNK (300/12.5MG, ID)
     Route: 065
  3. NIFEDIPINE. [Suspect]
     Active Substance: NIFEDIPINE
     Indication: HYPERTENSION
     Dosage: 60 MILLIGRAM, ONCE A DAY (UPTO 60 MG)
     Route: 065
  4. NEBIVOLOL 5MG [Suspect]
     Active Substance: NEBIVOLOL
     Indication: HYPERTENSION
     Dosage: 5 MILLIGRAM, ONCE A DAY
     Route: 065
  5. RILMENIDINE [Suspect]
     Active Substance: RILMENIDINE
     Indication: HYPERTENSION
     Dosage: 1 MILLIGRAM, ONCE A DAY
     Route: 065
  6. LOSARTAN. [Concomitant]
     Active Substance: LOSARTAN
     Indication: PRODUCT USED FOR UNKNOWN INDICATION
     Dosage: UNK
     Route: 065
  7. CLONIDINE. [Suspect]
     Active Substance: CLONIDINE
     Indication: HYPERTENSION
     Dosage: 0.15 MILLIGRAM, 3 TIMES A DAY (0.45,DAILY)
     Route: 065

REACTIONS (8)
  - Blood aldosterone increased [Unknown]
  - Renin decreased [Unknown]
  - Laboratory test interference [Recovered/Resolved]
  - Fatigue [Unknown]
  - Investigation [Unknown]
  - Ill-defined disorder [Recovering/Resolving]
  - Blood aldosterone abnormal [Unknown]
  - Primary hyperaldosteronism [Unknown]
